FAERS Safety Report 8239787-9 (Version None)
Quarter: 2012Q1

REPORT INFORMATION
  Report Type: 
  Country: None (occurrence: None)
  Receive Date: 20120328
  Receipt Date: 20120202
  Transmission Date: 20120608
  Serious: Yes (Other)
  Sender: FDA-Public Use
  Company Number: US-UCBSA-028980

PATIENT
  Age: 27 Year
  Sex: Female
  Weight: 50 kg

DRUGS (1)
  1. CIMZIA [Suspect]
     Route: 058

REACTIONS (3)
  - CAESAREAN SECTION [None]
  - TWIN PREGNANCY [None]
  - PREMATURE DELIVERY [None]
